FAERS Safety Report 5471781-3 (Version None)
Quarter: 2007Q3

REPORT INFORMATION
  Report Type: 
  Country: None (occurrence: None)
  Receive Date: 20070928
  Receipt Date: 20070621
  Transmission Date: 20080115
  Serious: Yes (Life-Threatening)
  Sender: FDA-Public Use
  Company Number: US-BRISTOL-MYERS SQUIBB COMPANY-13787171

PATIENT
  Age: 58 Year
  Sex: Female

DRUGS (8)
  1. DEFINITY [Suspect]
     Indication: STRESS ECHOCARDIOGRAM
     Dates: start: 20070510, end: 20070510
  2. LISINOPRIL [Concomitant]
  3. ASPIRIN [Concomitant]
  4. HYDROCHLOROTHIAZIDE [Concomitant]
     Dosage: 0.5 TABLET
  5. LIPITOR [Concomitant]
  6. ULTRAM [Concomitant]
  7. SKELAXIN [Concomitant]
  8. CLONIDINE [Concomitant]

REACTIONS (4)
  - BLOOD PRESSURE DECREASED [None]
  - CHEST PAIN [None]
  - ERYTHEMA [None]
  - SWELLING [None]
